FAERS Safety Report 6449492-7 (Version None)
Quarter: 2009Q4

REPORT INFORMATION
  Report Type: 
  Country: None (occurrence: None)
  Receive Date: 20091120
  Receipt Date: 20091108
  Transmission Date: 20100525
  Serious: Yes (Hospitalization, Other)
  Sender: FDA-Public Use
  Company Number: US-ELI_LILLY_AND_COMPANY-US200911002873

PATIENT
  Age: 74 Year
  Sex: Male

DRUGS (8)
  1. ZYPREXA [Suspect]
     Indication: DEMENTIA
     Dosage: 2.5 MG, UNKNOWN
     Route: 065
     Dates: start: 20091030, end: 20091109
  2. LEVOTHYROXINE SODIUM [Concomitant]
     Dosage: 50 UG, UNKNOWN
     Route: 065
  3. CARVEDILOL [Concomitant]
     Dosage: UNK, UNKNOWN
     Route: 065
  4. FLOMAX [Concomitant]
     Dosage: UNK, UNKNOWN
     Route: 065
  5. WARFARIN SODIUM [Concomitant]
     Dosage: UNK, UNKNOWN
     Route: 065
  6. ENALAPRIL MALEATE [Concomitant]
     Dosage: UNK, UNKNOWN
     Route: 065
  7. SIMVASTATIN [Concomitant]
     Dosage: UNK, UNKNOWN
     Route: 065
  8. EUCERIN [Concomitant]
     Dosage: UNK, UNKNOWN
     Route: 065

REACTIONS (8)
  - AGGRESSION [None]
  - EYE SWELLING [None]
  - FALL [None]
  - GAIT DISTURBANCE [None]
  - LOSS OF CONTROL OF LEGS [None]
  - OEDEMA PERIPHERAL [None]
  - SENSORY LOSS [None]
  - SWELLING FACE [None]
